FAERS Safety Report 5793859-7 (Version None)
Quarter: 2008Q2

REPORT INFORMATION
  Report Type: 
  Country: None (occurrence: None)
  Receive Date: 20080627
  Receipt Date: 20080619
  Transmission Date: 20081010
  Serious: Yes (Hospitalization)
  Sender: FDA-Public Use
  Company Number: FR-BOEHRINGER INGELHEIM GMBH, GERMANY-2008-FF-00478FF

PATIENT
  Age: 2 Month
  Sex: Male
  Weight: 2.11 kg

DRUGS (6)
  1. CATAPRES [Suspect]
     Indication: HYPERTENSION
     Dates: start: 20080328, end: 20080328
  2. PROPOFOL [Suspect]
     Indication: GENERAL ANAESTHESIA
     Dosage: 5 MG X 2 A DAY
     Route: 042
     Dates: start: 20080328, end: 20080328
  3. SEVORANE [Suspect]
     Indication: GENERAL ANAESTHESIA
     Route: 055
     Dates: start: 20080328, end: 20080328
  4. BUPIVACAINE [Suspect]
     Indication: ANAESTHESIA
  5. UVESTEROL VITAMINES A D E C [Concomitant]
     Indication: VITAMIN SUPPLEMENTATION
     Dosage: ONE DOSE PER DAY
     Route: 048
     Dates: start: 20080115
  6. FUMAFER [Concomitant]
     Indication: IRON DEFICIENCY
     Route: 048
     Dates: start: 20080122

REACTIONS (1)
  - RENAL FAILURE ACUTE [None]
